FAERS Safety Report 6072366-0 (Version None)
Quarter: 2009Q1

REPORT INFORMATION
  Report Type: 
  Country: None (occurrence: None)
  Receive Date: 20090210
  Receipt Date: 20090206
  Transmission Date: 20090719
  Serious: Yes (Death)
  Sender: FDA-Public Use
  Company Number: PHEH2009US00976

PATIENT
  Sex: Female

DRUGS (1)
  1. EXJADE [Suspect]
     Indication: IRON DEFICIENCY ANAEMIA
     Dosage: 2000 MG, QD
     Route: 048
     Dates: start: 20061117, end: 20070508

REACTIONS (1)
  - DISEASE PROGRESSION [None]
